FAERS Safety Report 4472802-7 (Version None)
Quarter: 2004Q4

REPORT INFORMATION
  Report Type: 
  Country: None (occurrence: None)
  Receive Date: 20041013
  Receipt Date: 20041006
  Transmission Date: 20050328
  Serious: Yes (Hospitalization)
  Sender: FDA-Public Use
  Company Number: 200420032GDDC

PATIENT
  Age: 55 Year
  Sex: Female

DRUGS (2)
  1. TRENTAL [Suspect]
     Indication: HEPATITIS ALCOHOLIC
     Route: 048
     Dates: start: 20040305, end: 20040404
  2. UNKNOWN DRUG [Concomitant]
     Indication: VARICES OESOPHAGEAL
     Route: 048
     Dates: start: 20040308

REACTIONS (1)
  - PANCREATITIS ACUTE [None]
